FAERS Safety Report 21699859 (Version 1)
Quarter: 2022Q4

REPORT INFORMATION
  Report Type: Spontaneous
  Country: IN (occurrence: IN)
  Receive Date: 20221208
  Receipt Date: 20221208
  Transmission Date: 20230112
  Serious: Yes (Other)
  Sender: FDA-Public Use
  Company Number: IN-MYLANLABS-2022M1137164

PATIENT
  Age: 5 Decade
  Sex: Male

DRUGS (10)
  1. ZIDOVUDINE [Suspect]
     Active Substance: ZIDOVUDINE
     Indication: HIV infection
     Dosage: UNK
     Route: 065
  2. LAMIVUDINE [Suspect]
     Active Substance: LAMIVUDINE
     Indication: HIV infection
     Dosage: UNK
     Route: 065
  3. EFAVIRENZ [Suspect]
     Active Substance: EFAVIRENZ
     Indication: HIV infection
     Dosage: UNK
     Route: 065
  4. LAMIVUDINE\NEVIRAPINE\ZIDOVUDINE [Suspect]
     Active Substance: LAMIVUDINE\NEVIRAPINE\ZIDOVUDINE
     Indication: HIV infection
     Dosage: UNK
     Route: 065
     Dates: start: 200802
  5. COTRIMOXAZOLE [Concomitant]
     Active Substance: SULFAMETHOXAZOLE\TRIMETHOPRIM
     Indication: Prophylaxis
     Dosage: UNK
     Route: 065
     Dates: start: 200707
  6. ISONIAZID [Concomitant]
     Active Substance: ISONIAZID
     Indication: Extrapulmonary tuberculosis
     Dosage: UNK
     Route: 065
     Dates: start: 200912
  7. ETHAMBUTOL [Concomitant]
     Active Substance: ETHAMBUTOL HYDROCHLORIDE
     Indication: Extrapulmonary tuberculosis
     Dosage: UNK
     Route: 065
     Dates: start: 200912
  8. PYRAZINAMIDE [Concomitant]
     Active Substance: PYRAZINAMIDE
     Indication: Extrapulmonary tuberculosis
     Dosage: UNK
     Route: 065
     Dates: start: 200912
  9. RIFAMPIN [Concomitant]
     Active Substance: RIFAMPIN
     Indication: Extrapulmonary tuberculosis
     Dosage: UNK
     Route: 065
     Dates: start: 200912
  10. ACYCLOVIR [Concomitant]
     Active Substance: ACYCLOVIR
     Indication: Lip ulceration
     Dosage: UNK
     Route: 065
     Dates: start: 2009

REACTIONS (1)
  - Treatment failure [Unknown]

NARRATIVE: CASE EVENT DATE: 20080901
